FAERS Safety Report 4300419-3 (Version None)
Quarter: 2004Q1

REPORT INFORMATION
  Report Type: 
  Country: None (occurrence: None)
  Receive Date: 20040218
  Receipt Date: 20040218
  Transmission Date: 20041129
  Serious: Yes (Hospitalization)
  Sender: FDA-Public Use
  Company Number: None

PATIENT
  Age: 55 Year
  Sex: Male
  Weight: 87.1 kg

DRUGS (4)
  1. ASPIRIN [Suspect]
  2. IBUPROFEN [Suspect]
     Indication: ARTHRALGIA
  3. FELODIPINE [Concomitant]
  4. INSULIN [Concomitant]

REACTIONS (2)
  - GASTRITIS [None]
  - RECTAL HAEMORRHAGE [None]
